FAERS Safety Report 10667239 (Version 1)
Quarter: 2014Q4

REPORT INFORMATION
  Report Type: Spontaneous
  Country: FI (occurrence: FI)
  Receive Date: 20141222
  Receipt Date: 20141222
  Transmission Date: 20150529
  Serious: Yes (Hospitalization)
  Sender: FDA-Public Use
  Company Number: FI-ROCHE-1509876

PATIENT
  Age: 72 Year
  Sex: Male
  Weight: 100 kg

DRUGS (17)
  1. NOVORAPID [Concomitant]
     Active Substance: INSULIN ASPART
  2. PANADOL [Concomitant]
     Active Substance: ACETAMINOPHEN
     Indication: PAIN IN EXTREMITY
  3. MABTHERA [Suspect]
     Active Substance: RITUXIMAB
     Indication: GRANULOMATOSIS WITH POLYANGIITIS
     Dosage: TWICE
     Route: 042
     Dates: start: 20141022
  4. SIMVASTATIN. [Concomitant]
     Active Substance: SIMVASTATIN
  5. BISOPROLOL [Concomitant]
     Active Substance: BISOPROLOL
  6. BECLOMET [Concomitant]
     Indication: CHRONIC OBSTRUCTIVE PULMONARY DISEASE
  7. SOMAC [Concomitant]
     Active Substance: PANTOPRAZOLE SODIUM
  8. FURESIS [Concomitant]
     Active Substance: FUROSEMIDE
  9. DITRIM DUPLO [Concomitant]
     Route: 065
  10. PEGORION [Concomitant]
     Indication: CONSTIPATION
  11. PROTAPHANE [Concomitant]
     Active Substance: INSULIN HUMAN
  12. AMLODIPINE [Concomitant]
     Active Substance: AMLODIPINE BESYLATE
  13. BUVENTOL [Concomitant]
     Indication: CHRONIC OBSTRUCTIVE PULMONARY DISEASE
  14. MABTHERA [Suspect]
     Active Substance: RITUXIMAB
     Dosage: TWICE
     Route: 042
     Dates: start: 20141112
  15. ORMOX [Concomitant]
  16. PREDNISOLON [Concomitant]
     Active Substance: PREDNISOLONE
     Route: 065
  17. SPIRIVA [Concomitant]
     Active Substance: TIOTROPIUM BROMIDE MONOHYDRATE
     Indication: CHRONIC OBSTRUCTIVE PULMONARY DISEASE

REACTIONS (1)
  - Pulmonary embolism [Recovered/Resolved]

NARRATIVE: CASE EVENT DATE: 20141025
